FAERS Safety Report 4367325-X (Version None)
Quarter: 2004Q2

REPORT INFORMATION
  Report Type: 
  Country: None (occurrence: None)
  Receive Date: 20040528
  Receipt Date: 20040528
  Transmission Date: 20050107
  Serious: Yes (Death)
  Sender: FDA-Public Use
  Company Number: None

PATIENT
  Sex: Male
  Weight: 74 kg

DRUGS (14)
  1. ZOMETA [Suspect]
     Indication: PROSTATE CANCER
     Dosage: 4 MG IV
     Route: 042
     Dates: start: 20031023
  2. LUPRON [Suspect]
     Indication: PROSTATE CANCER
     Dosage: 22.5 MG IM
     Route: 030
     Dates: start: 20031031
  3. LUPRON [Suspect]
     Indication: PROSTATE CANCER
     Dosage: 22.5 MG IM
     Route: 030
     Dates: start: 20040115
  4. LUPRON [Suspect]
     Indication: PROSTATE CANCER
     Dosage: 22.5 MG IM
     Route: 030
     Dates: start: 20040408
  5. DEXAMETHASONE [Concomitant]
  6. ONDANSETRON [Concomitant]
  7. OXYCODONE [Concomitant]
  8. PANTOPRAZOLE ECT [Concomitant]
  9. PHYTONADIONE TB [Concomitant]
  10. ASPIRIN [Concomitant]
  11. DOCUSATE/SENNA TB [Concomitant]
  12. BISACODYL ECT [Concomitant]
  13. FUROSEMIDE [Concomitant]
  14. POLYETHYLENE GLYCOL [Concomitant]

REACTIONS (1)
  - MALIGNANT NEOPLASM PROGRESSION [None]
